FAERS Safety Report 6716956-8 (Version None)
Quarter: 2010Q2

REPORT INFORMATION
  Report Type: 
  Country: None (occurrence: None)
  Receive Date: 20100510
  Receipt Date: 20100510
  Transmission Date: 20101027
  Serious: Yes (Other)
  Sender: FDA-Public Use
  Company Number: None

PATIENT
  Age: 1 Year
  Sex: Female
  Weight: 8.1647 kg

DRUGS (1)
  1. CONCENTRATED TYLENOL INFANT DROPS [Suspect]
     Indication: PYREXIA
     Dosage: .8ML 4HRS PO
     Route: 048
     Dates: start: 20090326, end: 20090328

REACTIONS (4)
  - HYPERSOMNIA [None]
  - PRODUCT QUALITY ISSUE [None]
  - SOMNOLENCE [None]
  - VIRAL INFECTION [None]
